FAERS Safety Report 10084829 (Version 1)
Quarter: 2014Q2

REPORT INFORMATION
  Report Type: Spontaneous
  Country: IT (occurrence: IT)
  Receive Date: 20140417
  Receipt Date: 20140417
  Transmission Date: 20141212
  Serious: Yes (Other)
  Sender: FDA-Public Use
  Company Number: IT-ELI_LILLY_AND_COMPANY-IT201404001891

PATIENT
  Age: 72 Year
  Sex: Female

DRUGS (3)
  1. HUMALOG LISPRO [Suspect]
     Indication: DIABETES MELLITUS
     Dosage: 15 IU, QD
     Route: 058
     Dates: start: 20130101, end: 20130302
  2. LEVEMIR [Suspect]
     Indication: DIABETES MELLITUS
     Dosage: 12 IU, QD
     Route: 058
     Dates: start: 20130101, end: 20130302
  3. CARDIOASPIRIN [Concomitant]

REACTIONS (2)
  - Hypoglycaemic unconsciousness [Recovering/Resolving]
  - Syncope [Recovering/Resolving]
